FAERS Safety Report 5395506-5 (Version None)
Quarter: 2007Q3

REPORT INFORMATION
  Report Type: 
  Country: None (occurrence: None)
  Receive Date: 20070724
  Receipt Date: 20070717
  Transmission Date: 20080115
  Serious: Yes (Life-Threatening, Hospitalization)
  Sender: FDA-Public Use
  Company Number: US-SANOFI-SYNTHELABO-F03200700138

PATIENT
  Sex: Female
  Weight: 63.1 kg

DRUGS (9)
  1. NORVASC [Concomitant]
     Dosage: UNK
     Route: 048
     Dates: start: 20060613, end: 20060921
  2. ASPIRIN [Concomitant]
     Dosage: UNK
     Route: 048
     Dates: start: 20060719
  3. PROTONIX [Concomitant]
     Dosage: UNK
     Route: 048
     Dates: start: 20060717
  4. METFORMIN HCL [Concomitant]
     Dosage: UNK
     Route: 048
     Dates: start: 20060717, end: 20060921
  5. LISINOPRIL [Concomitant]
     Dosage: UNK
     Route: 048
     Dates: start: 20060101
  6. OXALIPLATIN [Suspect]
     Indication: COLORECTAL CANCER
     Route: 042
     Dates: start: 20060918, end: 20060918
  7. FLUOROURACIL [Suspect]
     Indication: COLORECTAL CANCER
     Route: 042
     Dates: start: 20060920, end: 20060920
  8. BEVACIZUMAB [Suspect]
     Indication: COLORECTAL CANCER
     Route: 042
     Dates: start: 20060918, end: 20060918
  9. AG-013,736 [Suspect]
     Indication: COLORECTAL CANCER
     Route: 048
     Dates: start: 20060531, end: 20060928

REACTIONS (2)
  - LIVER FUNCTION TEST ABNORMAL [None]
  - RESPIRATORY FAILURE [None]
